FAERS Safety Report 14871036 (Version 2)
Quarter: 2018Q2

REPORT INFORMATION
  Report Type: Spontaneous
  Country: FR (occurrence: FR)
  Receive Date: 20180509
  Receipt Date: 20180620
  Transmission Date: 20180711
  Serious: Yes (Hospitalization)
  Sender: FDA-Public Use
  Company Number: FR-GLAXOSMITHKLINE-FR2018076732

PATIENT
  Age: 61 Year
  Sex: Male
  Weight: 73.5 kg

DRUGS (2)
  1. BENLYSTA [Suspect]
     Active Substance: BELIMUMAB
     Indication: SYSTEMIC LUPUS ERYTHEMATOSUS
     Dosage: 200 MG, WE
     Route: 058
     Dates: start: 20180208, end: 20180405
  2. IMETH [Concomitant]
     Active Substance: METHOTREXATE SODIUM
     Indication: SYSTEMIC LUPUS ERYTHEMATOSUS
     Dosage: 10 MG, WE
     Route: 065
     Dates: start: 20180208, end: 20180428

REACTIONS (1)
  - Subcorneal pustular dermatosis [Recovered/Resolved]

NARRATIVE: CASE EVENT DATE: 20180426
